FAERS Safety Report 5030715-6 (Version None)
Quarter: 2006Q2

REPORT INFORMATION
  Report Type: 
  Country: None (occurrence: None)
  Receive Date: 20060615
  Receipt Date: 20060608
  Transmission Date: 20061013
  Serious: Yes (Death)
  Sender: FDA-Public Use
  Company Number: FI200606001894

PATIENT
  Age: 25 Year
  Sex: Male

DRUGS (2)
  1. ZYPREXA [Suspect]
     Indication: SCHIZOPHRENIA
     Dosage: 40 MG DAILY (1/D) ORAL
     Route: 048
     Dates: end: 20060101
  2. BENZODIAZEPINE DERIVATIVES [Concomitant]

REACTIONS (1)
  - OVERDOSE [None]
